FAERS Safety Report 4560825-9 (Version None)
Quarter: 2005Q1

REPORT INFORMATION
  Report Type: 
  Country: None (occurrence: None)
  Receive Date: 20050126
  Receipt Date: 20050112
  Transmission Date: 20050727
  Serious: Yes (Other)
  Sender: FDA-Public Use
  Company Number: PHNU2005DE00539

PATIENT
  Sex: Female

DRUGS (1)
  1. CLOZARIL [Suspect]
     Dosage: UNKNOWN
     Route: 048
     Dates: start: 20030919, end: 20030919

REACTIONS (2)
  - ACCIDENTAL EXPOSURE [None]
  - CIRCULATORY COLLAPSE [None]
